FAERS Safety Report 15270436 (Version 1)
Quarter: 2018Q3

REPORT INFORMATION
  Report Type: Spontaneous
  Country: GB (occurrence: GB)
  Receive Date: 20180813
  Receipt Date: 20180813
  Transmission Date: 20181010
  Serious: Yes (Disabling, Other)
  Sender: FDA-Public Use
  Company Number: GB-BAYER-2018-146143

PATIENT
  Age: 23 Year
  Sex: Male

DRUGS (1)
  1. ASPRO CLEAR 300 MG [Suspect]
     Active Substance: ASPIRIN

REACTIONS (2)
  - Loss of consciousness [Recovered/Resolved with Sequelae]
  - Vomiting [Recovered/Resolved with Sequelae]

NARRATIVE: CASE EVENT DATE: 20180714
